FAERS Safety Report 22104588 (Version 1)
Quarter: 2023Q1

REPORT INFORMATION
  Report Type: Spontaneous
  Country: US (occurrence: None)
  Receive Date: 20230316
  Receipt Date: 20230316
  Transmission Date: 20230418
  Serious: Yes (Hospitalization)
  Sender: FDA-Public Use
  Company Number: None

PATIENT
  Age: 74 Year
  Sex: Male
  Weight: 86.1 kg

DRUGS (20)
  1. OXALIPLATIN [Suspect]
     Active Substance: OXALIPLATIN
  2. LEUCOVORIN [Suspect]
     Active Substance: LEUCOVORIN
  3. IRINOTECAN [Suspect]
     Active Substance: IRINOTECAN
  4. FLUOROURACIL [Suspect]
     Active Substance: FLUOROURACIL
  5. ACETAMINOPHEN [Concomitant]
     Active Substance: ACETAMINOPHEN
  6. COMPAZINE [Concomitant]
     Active Substance: PROCHLORPERAZINE MALEATE
  7. LIPITOR [Concomitant]
     Active Substance: ATORVASTATIN CALCIUM
  8. TAMSULOSIN [Concomitant]
     Active Substance: TAMSULOSIN
  9. DEXAMETHASONE [Concomitant]
     Active Substance: DEXAMETHASONE
  10. IBUPROFEN [Concomitant]
     Active Substance: IBUPROFEN
  11. TRAZODONE [Concomitant]
     Active Substance: TRAZODONE HYDROCHLORIDE
  12. DIGOXIN [Concomitant]
     Active Substance: DIGOXIN
  13. EFFEXOR XR [Concomitant]
     Active Substance: VENLAFAXINE HYDROCHLORIDE
  14. Loperimide [Concomitant]
  15. LORAZEPAM [Concomitant]
     Active Substance: LORAZEPAM
  16. LOSARTAN [Concomitant]
     Active Substance: LOSARTAN
  17. OMEPRAZOLE [Concomitant]
     Active Substance: OMEPRAZOLE
  18. ONDANSETRON [Concomitant]
     Active Substance: ONDANSETRON
  19. POTASSIUM CHLORIDE [Concomitant]
     Active Substance: POTASSIUM CHLORIDE
  20. SODIUM CHLORIDE [Concomitant]
     Active Substance: SODIUM CHLORIDE

REACTIONS (2)
  - Cholangitis [None]
  - Device occlusion [None]

NARRATIVE: CASE EVENT DATE: 20230314
